FAERS Safety Report 19374306 (Version 4)
Quarter: 2021Q4

REPORT INFORMATION
  Report Type: Spontaneous
  Country: GB (occurrence: GB)
  Receive Date: 20210603
  Receipt Date: 20211213
  Transmission Date: 20220303
  Serious: Yes (Other)
  Sender: FDA-Public Use
  Company Number: GB-PFIZER INC-2021598514

PATIENT
  Age: 62 Year
  Sex: Male

DRUGS (2)
  1. ENBREL [Suspect]
     Active Substance: ETANERCEPT
     Indication: Rheumatoid arthritis
     Dosage: 50 MG, EVERY 10 DAYS
     Route: 065
  2. ENBREL [Suspect]
     Active Substance: ETANERCEPT
     Dosage: 50 MG, EVERY 7 DAYS
     Route: 065

REACTIONS (6)
  - Psoriatic arthropathy [Unknown]
  - Off label use [Unknown]
  - Product dose omission issue [Unknown]
  - Product dose omission issue [Unknown]
  - Chronic lymphocytic leukaemia [Unknown]
  - Leukaemia [Unknown]
